FAERS Safety Report 10010154 (Version 1)
Quarter: 2014Q1

REPORT INFORMATION
  Report Type: Spontaneous
  Country: US (occurrence: US)
  Receive Date: 20140312
  Receipt Date: 20140312
  Transmission Date: 20141002
  Serious: No
  Sender: FDA-Public Use
  Company Number: US-INCYTE CORPORATION-2013IN001540

PATIENT
  Age: 88 Year
  Sex: Female

DRUGS (18)
  1. JAKAFI [Suspect]
     Indication: MYELOFIBROSIS
     Dosage: 5 MG, BID
     Route: 048
     Dates: start: 20130515
  2. PATADAY [Concomitant]
  3. DEXLANSOPRAZOLE [Concomitant]
  4. POTASSIUM [Concomitant]
  5. PLAVIX [Concomitant]
  6. TENORMIN [Concomitant]
  7. HYZAAR [Concomitant]
  8. SINGULAR [Concomitant]
  9. LASIX [Concomitant]
  10. NEURONTIN [Concomitant]
  11. MAGNESIUM [Concomitant]
  12. COQ10 [Concomitant]
  13. CALCIUM DISODIUM VERSENATE [Concomitant]
  14. VITAMIN E [Concomitant]
  15. NIACIN [Concomitant]
  16. FOLIC ACID [Concomitant]
  17. HALCION [Concomitant]
  18. LIDODERM [Concomitant]

REACTIONS (4)
  - Diarrhoea [Unknown]
  - Nausea [Unknown]
  - Nasopharyngitis [Not Recovered/Not Resolved]
  - Rhinorrhoea [Not Recovered/Not Resolved]
